APPROVED DRUG PRODUCT: DOXYCYCLINE HYCLATE
Active Ingredient: DOXYCYCLINE HYCLATE
Strength: EQ 100MG BASE
Dosage Form/Route: TABLET;ORAL
Application: A210536 | Product #001
Applicant: ALEMBIC PHARMACEUTICALS LTD
Approved: May 14, 2020 | RLD: No | RS: No | Type: DISCN